FAERS Safety Report 15289436 (Version 3)
Quarter: 2018Q3

REPORT INFORMATION
  Report Type: Report from Study
  Country: AT (occurrence: AT)
  Receive Date: 20180817
  Receipt Date: 20180905
  Transmission Date: 20181010
  Serious: Yes (Hospitalization, Other)
  Sender: FDA-Public Use
  Company Number: AT-ROCHE-2170504

PATIENT
  Age: 71 Year
  Sex: Male
  Weight: 84.5 kg

DRUGS (9)
  1. OBINUTUZUMAB. [Suspect]
     Active Substance: OBINUTUZUMAB
     Indication: CHRONIC LYMPHOCYTIC LEUKAEMIA
     Dosage: LAST DOSE ON (1000 MG) 14/AUG/2018
     Route: 042
     Dates: start: 20180424
  2. CONCOR [Concomitant]
     Active Substance: BISOPROLOL FUMARATE
     Route: 048
     Dates: start: 201507
  3. ATORVASTATIN [Concomitant]
     Active Substance: ATORVASTATIN
     Dosage: 2 TABLETS
     Route: 048
     Dates: start: 201506, end: 20180814
  4. VENETOCLAX. [Suspect]
     Active Substance: VENETOCLAX
     Indication: CHRONIC LYMPHOCYTIC LEUKAEMIA
     Dosage: LAST DOSE ON (400 MG) 14/AUG/2018
     Route: 048
     Dates: start: 20180516
  5. ALLOPURINOL. [Concomitant]
     Active Substance: ALLOPURINOL
     Dosage: 2 TABLETS
     Route: 048
     Dates: start: 20180421, end: 20180816
  6. RAMIPRIL. [Concomitant]
     Active Substance: RAMIPRIL
     Route: 048
     Dates: start: 201506
  7. CEREBOKAN [Concomitant]
     Active Substance: GINKGO
     Route: 048
     Dates: start: 20180417
  8. LIDAPRIM FORTE [Concomitant]
     Dosage: 2 TABLETS
     Route: 048
     Dates: start: 20180518, end: 20180813
  9. TROMBO ASS [Concomitant]
     Active Substance: ASPIRIN
     Route: 048
     Dates: start: 201506

REACTIONS (1)
  - Cytomegalovirus infection [Recovered/Resolved]

NARRATIVE: CASE EVENT DATE: 20180814
